FAERS Safety Report 11840386 (Version 1)
Quarter: 2015Q4

REPORT INFORMATION
  Report Type: Spontaneous
  Country: US (occurrence: US)
  Receive Date: 20151216
  Receipt Date: 20151216
  Transmission Date: 20160305
  Serious: No
  Sender: FDA-Public Use
  Company Number: US-GALDERMA-US15007145

PATIENT
  Age: 14 Year
  Sex: Male

DRUGS (1)
  1. MIRVASO [Suspect]
     Active Substance: BRIMONIDINE TARTRATE
     Indication: ROSACEA
     Dosage: 0.33%
     Route: 061
     Dates: start: 20150901, end: 20150903

REACTIONS (3)
  - Drug effect decreased [Recovered/Resolved]
  - Drug prescribing error [Recovered/Resolved]
  - Drug administered to patient of inappropriate age [Recovered/Resolved]

NARRATIVE: CASE EVENT DATE: 20150901
